FAERS Safety Report 11750509 (Version 2)
Quarter: 2016Q1

REPORT INFORMATION
  Report Type: Spontaneous
  Country: US (occurrence: US)
  Receive Date: 20151118
  Receipt Date: 20160104
  Transmission Date: 20160525
  Serious: Yes (Other)
  Sender: FDA-Public Use
  Company Number: US-PFIZER INC-2015346166

PATIENT
  Age: 70 Year
  Sex: Female
  Weight: 56 kg

DRUGS (9)
  1. BACLOFEN. [Concomitant]
     Active Substance: BACLOFEN
     Dosage: 20 MG, 2X/DAY
  2. ACTIQ [Concomitant]
     Active Substance: FENTANYL CITRATE
     Dosage: 100 ?G, UNK (H.S)
  3. NORPACE [Suspect]
     Active Substance: DISOPYRAMIDE PHOSPHATE
     Indication: ARRHYTHMIA
     Dosage: 100 MG, 2X/DAY
     Dates: start: 1975
  4. VALIUM [Concomitant]
     Active Substance: DIAZEPAM
     Dosage: 50 MG, UNK (H.S.)
  5. ACTIQ [Concomitant]
     Active Substance: FENTANYL CITRATE
     Dosage: 100 ?G, AS NEEDED (TWO AT 8 HOURS PRN )
  6. ZOFRAN [Concomitant]
     Active Substance: ONDANSETRON HYDROCHLORIDE
     Dosage: 8 MG, (ODT)
  7. SYNTHROID [Concomitant]
     Active Substance: LEVOTHYROXINE SODIUM
     Dosage: 50 UG, 2X/DAY
  8. NORPACE [Suspect]
     Active Substance: DISOPYRAMIDE PHOSPHATE
     Indication: SUPRAVENTRICULAR TACHYCARDIA
  9. ACTIQ [Concomitant]
     Active Substance: FENTANYL CITRATE
     Dosage: 200 ?G, UNK

REACTIONS (7)
  - Neuropathy peripheral [Unknown]
  - Pain [Unknown]
  - Syringomyelia [Unknown]
  - Cyst [Unknown]
  - Road traffic accident [Unknown]
  - Gastrointestinal motility disorder [Unknown]
  - Pancreatitis chronic [Unknown]

NARRATIVE: CASE EVENT DATE: 1980
